FAERS Safety Report 5344106-1 (Version None)
Quarter: 2007Q2

REPORT INFORMATION
  Report Type: 
  Country: None (occurrence: None)
  Receive Date: 20070604
  Receipt Date: 20070527
  Transmission Date: 20071010
  Serious: Yes (Hospitalization)
  Sender: FDA-Public Use
  Company Number: B0473513A

PATIENT
  Age: 73 Year
  Sex: Female

DRUGS (7)
  1. KREDEX [Suspect]
     Dosage: 6.25MG PER DAY
     Route: 048
  2. ALDACTONE [Suspect]
     Dosage: 25MG PER DAY
     Route: 048
  3. LASIX [Suspect]
     Dosage: 40MG PER DAY
     Route: 048
  4. ATACAND [Suspect]
     Dosage: 2MG PER DAY
     Route: 048
  5. PREVISCAN [Suspect]
     Indication: DRUG USE FOR UNKNOWN INDICATION
     Route: 048
  6. CORDARONE [Concomitant]
     Dates: end: 20070418
  7. LEXOMIL [Concomitant]

REACTIONS (5)
  - ALANINE AMINOTRANSFERASE INCREASED [None]
  - ASPARTATE AMINOTRANSFERASE INCREASED [None]
  - BLOOD ALKALINE PHOSPHATASE INCREASED [None]
  - DYSPNOEA AT REST [None]
  - GAMMA-GLUTAMYLTRANSFERASE INCREASED [None]
